FAERS Safety Report 8333407-0 (Version None)
Quarter: 2012Q2

REPORT INFORMATION
  Report Type: 
  Country: None (occurrence: None)
  Receive Date: 20120503
  Receipt Date: 20120427
  Transmission Date: 20120825
  Serious: Yes (Other)
  Sender: FDA-Public Use
  Company Number: BR-PFIZER INC-2012097418

PATIENT
  Age: 76 Year
  Sex: Male
  Weight: 102 kg

DRUGS (3)
  1. DIOVAN [Concomitant]
  2. VIAGRA [Suspect]
     Indication: ERECTILE DYSFUNCTION
     Dosage: 100 MG, UNK
     Route: 048
     Dates: end: 20120201
  3. DIOVAN [Concomitant]
     Indication: HYPERTENSION
     Dosage: 320 MG, 1X/DAY

REACTIONS (2)
  - BACK PAIN [None]
  - VISUAL IMPAIRMENT [None]
